FAERS Safety Report 5568738-0 (Version None)
Quarter: 2007Q4

REPORT INFORMATION
  Report Type: 
  Country: None (occurrence: None)
  Receive Date: 20071220
  Receipt Date: 20061208
  Transmission Date: 20080405
  Serious: No
  Sender: FDA-Public Use
  Company Number: A0630937A

PATIENT
  Sex: Male

DRUGS (12)
  1. AVODART [Suspect]
     Dosage: .5MG PER DAY
     Route: 048
  2. PLAVIX [Concomitant]
  3. ASPIRIN [Concomitant]
  4. ALTACE [Concomitant]
  5. NIASPAN [Concomitant]
  6. LIPITOR [Concomitant]
  7. HYDROCHLOROTHIAZIDE [Concomitant]
  8. DULCOLAX [Concomitant]
  9. PREVACID [Concomitant]
  10. IRON SUPPLEMENT [Concomitant]
  11. ACTONEL [Concomitant]
  12. M.V.I. [Concomitant]

REACTIONS (1)
  - ABDOMINAL DISCOMFORT [None]
